FAERS Safety Report 17772697 (Version 2)
Quarter: 2020Q2

REPORT INFORMATION
  Report Type: Report from Study
  Country: None (occurrence: CO)
  Receive Date: 20200512
  Receipt Date: 20200514
  Transmission Date: 20200714
  Serious: Yes (Other)
  Sender: FDA-Public Use
  Company Number: CO-ABBVIE-20K-036-3401146-00

PATIENT
  Age: 65 Year
  Sex: Male
  Weight: 52 kg

DRUGS (1)
  1. IMBRUVICA [Suspect]
     Active Substance: IBRUTINIB
     Indication: WALDENSTROM^S MACROGLOBULINAEMIA
     Route: 048
     Dates: start: 20190529

REACTIONS (2)
  - Haemoglobin decreased [Not Recovered/Not Resolved]
  - Blood creatinine abnormal [Not Recovered/Not Resolved]

NARRATIVE: CASE EVENT DATE: 20200428
